FAERS Safety Report 9691597 (Version 3)
Quarter: 2013Q4

REPORT INFORMATION
  Report Type: Report from Study
  Country: CL (occurrence: CL)
  Receive Date: 20131115
  Receipt Date: 20131219
  Transmission Date: 20140711
  Serious: Yes (Other)
  Sender: FDA-Public Use
  Company Number: CL-ROCHE-1293460

PATIENT
  Age: 80 Year
  Sex: Female
  Weight: 49 kg

DRUGS (1)
  1. XELODA [Suspect]
     Indication: RECTAL CANCER
     Route: 048
     Dates: start: 20130923, end: 20131210

REACTIONS (12)
  - Muscle spasms [Not Recovered/Not Resolved]
  - Tremor [Recovering/Resolving]
  - Muscular weakness [Not Recovered/Not Resolved]
  - Skin discolouration [Not Recovered/Not Resolved]
  - White blood cell count decreased [Recovered/Resolved]
  - Blindness transient [Recovered/Resolved]
  - Diarrhoea [Recovering/Resolving]
  - Disorientation [Recovering/Resolving]
  - Stomatitis [Recovering/Resolving]
  - Oesophageal irritation [Recovering/Resolving]
  - Eye infection [Recovering/Resolving]
  - Vomiting [Recovered/Resolved]
